FAERS Safety Report 8829796 (Version 1)
Quarter: 2012Q4

REPORT INFORMATION
  Report Type: 
  Country: FR (occurrence: FR)
  Receive Date: 20121008
  Receipt Date: 20121008
  Transmission Date: 20130627
  Serious: Yes (Hospitalization, Other)
  Sender: FDA-Public Use
  Company Number: FR-BRISTOL-MYERS SQUIBB COMPANY-17009283

PATIENT
  Age: 66 Year
  Sex: Male

DRUGS (10)
  1. REYATAZ CAPS 300 MG [Suspect]
     Dosage: In morning
     Route: 048
     Dates: start: 20091119, end: 20120802
  2. TRUVADA [Suspect]
     Dosage: 1DF: 200 mg/245 mg,. morning, film-coated tablet
     Route: 048
     Dates: start: 20111125, end: 20120802
  3. NORVIR [Suspect]
     Dosage: film-coated tablet, morning
     Route: 048
     Dates: start: 20111125
  4. PENTACARINAT [Concomitant]
     Dosage: powder for aerosol and for parenteral use
     Route: 055
     Dates: start: 20120802
  5. EPIVIR [Concomitant]
     Dosage: film-coated tablet
     Route: 048
     Dates: start: 20120802
  6. PREZISTA [Concomitant]
     Route: 048
     Dates: start: 20120802
  7. ZIAGEN [Concomitant]
     Route: 048
     Dates: start: 20120802
  8. DIAMICRON [Concomitant]
     Route: 048
     Dates: end: 20120823
  9. WELLVONE [Concomitant]
     Dosage: 750 mg/5ml, oral suspension, in morning
     Route: 048
     Dates: end: 20120802
  10. KARDEGIC [Concomitant]

REACTIONS (5)
  - Crystal nephropathy [Unknown]
  - Renal failure acute [Recovered/Resolved]
  - Nephrolithiasis [Recovered/Resolved]
  - Overdose [Unknown]
  - Hyperbilirubinaemia [Unknown]
